FAERS Safety Report 16111241 (Version 1)
Quarter: 2019Q1

REPORT INFORMATION
  Report Type: Spontaneous
  Country: FR (occurrence: FR)
  Receive Date: 20190325
  Receipt Date: 20190325
  Transmission Date: 20190418
  Serious: Yes (Other)
  Sender: FDA-Public Use
  Company Number: FR-BAYER-2017-135524

PATIENT
  Age: 22 Year
  Sex: Female
  Weight: 61 kg

DRUGS (1)
  1. JAYDESS [Suspect]
     Active Substance: LEVONORGESTREL
     Indication: CONTRACEPTION
     Dosage: 14 MCG/24HR, CONT
     Route: 015
     Dates: start: 20160203, end: 20170704

REACTIONS (5)
  - Abortion induced [Recovered/Resolved]
  - Pregnancy with contraceptive device [Recovered/Resolved]
  - Drug ineffective [None]
  - Device expulsion [Recovered/Resolved]
  - Pain [None]

NARRATIVE: CASE EVENT DATE: 20170704
